FAERS Safety Report 9016287 (Version 2)
Quarter: 2013Q1

REPORT INFORMATION
  Report Type: Spontaneous
  Country: JP (occurrence: JP)
  Receive Date: 20130116
  Receipt Date: 20130129
  Transmission Date: 20140127
  Serious: Yes (Hospitalization)
  Sender: FDA-Public Use
  Company Number: JP-B.I. PHARMACEUTICALS,INC./RIDGEFIELD-2013-BI-00813NB

PATIENT
  Sex: Female

DRUGS (1)
  1. PRADAXA [Suspect]
     Route: 048

REACTIONS (1)
  - Fracture [Unknown]
